FAERS Safety Report 6052044-4 (Version None)
Quarter: 2009Q1

REPORT INFORMATION
  Report Type: 
  Country: None (occurrence: None)
  Receive Date: 20090126
  Receipt Date: 20090123
  Transmission Date: 20090719
  Serious: Yes (Hospitalization)
  Sender: FDA-Public Use
  Company Number: US-KINGPHARMUSA00001-K200900067

PATIENT
  Age: 85 Year
  Sex: Male

DRUGS (5)
  1. ALTACE [Suspect]
     Indication: MYOCARDIAL INFARCTION
     Dosage: UNK
     Route: 048
     Dates: start: 20080201, end: 20080310
  2. ALTACE [Suspect]
     Indication: HYPERTENSION
  3. ALTACE [Suspect]
     Indication: PULMONARY OEDEMA
  4. FURIX [Concomitant]
  5. ZYLORIC                            /00003301/ [Concomitant]
     Dosage: UNK
     Dates: end: 20080101

REACTIONS (2)
  - DEHYDRATION [None]
  - FATIGUE [None]
